FAERS Safety Report 14908599 (Version 1)
Quarter: 2018Q2

REPORT INFORMATION
  Report Type: Spontaneous
  Country: KR (occurrence: KR)
  Receive Date: 20180517
  Receipt Date: 20180517
  Transmission Date: 20180711
  Serious: Yes (Other)
  Sender: FDA-Public Use
  Company Number: IND-KR-009507513-1805KOR004916

PATIENT
  Sex: Male

DRUGS (1)
  1. ANDRIOL TESTOCAPS [Suspect]
     Active Substance: TESTOSTERONE UNDECANOATE
     Dosage: 80 MG, DAILY
     Route: 048

REACTIONS (2)
  - Arrhythmia [Unknown]
  - Palpitations [Unknown]
